FAERS Safety Report 25627826 (Version 2)
Quarter: 2025Q3

REPORT INFORMATION
  Report Type: Report from Study
  Country: US (occurrence: US)
  Receive Date: 20250731
  Receipt Date: 20250819
  Transmission Date: 20251021
  Serious: No
  Sender: ACADIA PHARMACEUTICALS
  Company Number: US-ACADIA PHARMACEUTICALS INC.-ACA-2025-PIM-008832

PATIENT
  Age: 77 Year
  Sex: Male

DRUGS (13)
  1. NUPLAZID [Suspect]
     Active Substance: PIMAVANSERIN TARTRATE
     Indication: Parkinson^s disease psychosis
     Dosage: 34 MILLIGRAM, QD
     Route: 048
     Dates: start: 20250701, end: 20250702
  2. AMLODIPINE [Concomitant]
     Active Substance: AMLODIPINE BESYLATE
  3. ASCORBIC ACID [Concomitant]
     Active Substance: ASCORBIC ACID
  4. ASPIRIN [Concomitant]
     Active Substance: ASPIRIN
  5. CALCIUM [Concomitant]
     Active Substance: CALCIUM
  6. CHOLECALCIFEROL [Concomitant]
     Active Substance: CHOLECALCIFEROL
  7. HYDROCHLOROTHIAZIDE [Concomitant]
     Active Substance: HYDROCHLOROTHIAZIDE
  8. HUMULIN 70/30 [Concomitant]
     Active Substance: INSULIN HUMAN
  9. LIDOCAINE [Concomitant]
     Active Substance: LIDOCAINE
  10. VITAMINS NOS [Concomitant]
     Active Substance: VITAMINS
  11. QUETIAPINE [Concomitant]
     Active Substance: QUETIAPINE
  12. ROSUVASTATIN [Concomitant]
     Active Substance: ROSUVASTATIN
  13. SENNA LEAF [Concomitant]
     Active Substance: SENNA LEAF

REACTIONS (2)
  - Headache [Recovered/Resolved]
  - Aggression [Recovered/Resolved]

NARRATIVE: CASE EVENT DATE: 20250701
